FAERS Safety Report 25163789 (Version 3)
Quarter: 2025Q3

REPORT INFORMATION
  Report Type: Spontaneous
  Country: EU (occurrence: EU)
  Receive Date: 20250405
  Receipt Date: 20250910
  Transmission Date: 20251021
  Serious: Yes (Other)
  Sender: AUROBINDO
  Company Number: EU-AUROBINDO-AUR-APL-2024-000248

PATIENT
  Age: 4 Year
  Sex: Male

DRUGS (7)
  1. RISPERIDONE [Suspect]
     Active Substance: RISPERIDONE
     Indication: Behaviour disorder
     Dosage: 0.20 MILLIGRAM, ONCE A DAY (0.20MG/DAY FOR FOUR MONTHS)
     Route: 065
  2. RISPERIDONE [Suspect]
     Active Substance: RISPERIDONE
     Indication: Impulsive behaviour
  3. RISPERIDONE [Suspect]
     Active Substance: RISPERIDONE
     Indication: Disturbance in social behaviour
  4. RISPERIDONE [Suspect]
     Active Substance: RISPERIDONE
     Indication: Impulse-control disorder
  5. PALIPERIDONE [Suspect]
     Active Substance: PALIPERIDONE
     Indication: Impulsive behaviour
     Dosage: 3 MILLIGRAM, ONCE A DAY
     Route: 065
  6. PALIPERIDONE [Suspect]
     Active Substance: PALIPERIDONE
     Indication: Antipsychotic therapy
  7. PALIPERIDONE [Suspect]
     Active Substance: PALIPERIDONE
     Indication: Psychomotor hyperactivity

REACTIONS (5)
  - Galactorrhoea [Recovered/Resolved]
  - Hyperprolactinaemia [Recovered/Resolved]
  - Breast discharge [Recovered/Resolved]
  - Off label use [Recovered/Resolved]
  - Product use issue [Unknown]
